FAERS Safety Report 7738605-2 (Version None)
Quarter: 2011Q3

REPORT INFORMATION
  Report Type: 
  Country: None (occurrence: None)
  Receive Date: 20110908
  Receipt Date: 20110830
  Transmission Date: 20111222
  Serious: Yes (Hospitalization)
  Sender: FDA-Public Use
  Company Number: US-ASTRAZENECA-2011SE49394

PATIENT
  Age: 59 Year
  Sex: Female
  Weight: 47.2 kg

DRUGS (12)
  1. SEROQUEL [Suspect]
     Indication: DEPRESSION
     Route: 048
     Dates: start: 20110301, end: 20110701
  2. SEROQUEL [Suspect]
     Route: 048
  3. SEROQUEL [Suspect]
     Indication: SLEEP DISORDER
     Route: 048
     Dates: start: 20110301, end: 20110701
  4. SEROQUEL [Suspect]
     Route: 048
  5. TRAMADOL HYDROCHLORIDE [Concomitant]
     Dosage: AS REQUIRED
  6. COE Q10 [Concomitant]
  7. VITAMIN D [Concomitant]
  8. MULTI-VITAMINS [Concomitant]
  9. CYMBALTA [Concomitant]
     Indication: DEPRESSION
  10. SEROQUEL [Suspect]
     Route: 048
  11. LYRICA [Concomitant]
  12. SEROQUEL [Suspect]
     Route: 048

REACTIONS (8)
  - FEELING ABNORMAL [None]
  - HALLUCINATIONS, MIXED [None]
  - METABOLIC ACIDOSIS [None]
  - OFF LABEL USE [None]
  - HEARING IMPAIRED [None]
  - TOOTH FRACTURE [None]
  - BRUXISM [None]
  - TREMOR [None]
